FAERS Safety Report 5570747-2 (Version None)
Quarter: 2007Q4

REPORT INFORMATION
  Report Type: 
  Country: None (occurrence: None)
  Receive Date: 20071221
  Receipt Date: 20070903
  Transmission Date: 20080405
  Serious: No
  Sender: FDA-Public Use
  Company Number: US-BAUSCH-2007BL002550

PATIENT
  Age: 65 Year
  Sex: Female

DRUGS (5)
  1. ZYLET [Suspect]
     Indication: EYE INFECTION
     Route: 047
     Dates: start: 20070716, end: 20070720
  2. ZYLET [Suspect]
     Indication: EYE INFLAMMATION
     Route: 047
     Dates: start: 20070716, end: 20070720
  3. ZYLET [Suspect]
     Route: 047
     Dates: start: 20070721, end: 20070701
  4. ZYLET [Suspect]
     Route: 047
     Dates: start: 20070721, end: 20070701
  5. QUIXIN /USA/ [Concomitant]
     Indication: EYE INFECTION
     Dates: start: 20070524

REACTIONS (2)
  - EYE IRRITATION [None]
  - EYE PRURITUS [None]
